FAERS Safety Report 9748412 (Version 2)
Quarter: 2014Q1

REPORT INFORMATION
  Report Type: Spontaneous
  Country: IT (occurrence: IT)
  Receive Date: 20131212
  Receipt Date: 20140217
  Transmission Date: 20141002
  Serious: Yes (Death, Hospitalization)
  Sender: FDA-Public Use
  Company Number: PHHY2013IT145349

PATIENT
  Age: 70 Year
  Sex: Female

DRUGS (4)
  1. AFINITOR [Suspect]
     Indication: BREAST CANCER
     Dosage: 10 MG, DAILY
     Route: 048
     Dates: start: 20131025, end: 20131031
  2. EXEMESTANE [Concomitant]
     Indication: BREAST CANCER
     Dosage: 25 MG, DAILY
     Route: 048
     Dates: start: 20131010, end: 20131031
  3. NOVONORM [Concomitant]
     Indication: DIABETES MELLITUS
  4. BLOPRESS [Concomitant]
     Indication: HYPERTENSION

REACTIONS (6)
  - Hepatorenal syndrome [Fatal]
  - Hepatic failure [Fatal]
  - Jaundice [Fatal]
  - Biliary dilatation [Fatal]
  - Anuria [Fatal]
  - Ascites [Fatal]
